FAERS Safety Report 25042681 (Version 3)
Quarter: 2025Q1

REPORT INFORMATION
  Report Type: Spontaneous
  Country: US (occurrence: US)
  Receive Date: 20250305
  Receipt Date: 20250317
  Transmission Date: 20250409
  Serious: Yes (Other)
  Sender: PFIZER
  Company Number: US-PFIZER INC-PV202400014607

PATIENT
  Age: 68 Year
  Sex: Female
  Weight: 61.235 kg

DRUGS (5)
  1. BOSULIF [Suspect]
     Active Substance: BOSUTINIB MONOHYDRATE
     Indication: Chronic myeloid leukaemia
     Dosage: 400 MG, DAILY (MUST ADMINISTER WITH MEAL/FOOD)
     Route: 048
     Dates: start: 20240112
  2. BOSULIF [Suspect]
     Active Substance: BOSUTINIB MONOHYDRATE
     Indication: Leukocytosis
     Route: 048
     Dates: start: 20240423
  3. BOSULIF [Suspect]
     Active Substance: BOSUTINIB MONOHYDRATE
     Indication: Neutrophilic dermatosis
     Route: 048
     Dates: start: 20240506
  4. BOSULIF [Suspect]
     Active Substance: BOSUTINIB MONOHYDRATE
     Indication: White blood cells urine abnormal
     Route: 048
     Dates: start: 20241011
  5. BOSULIF [Suspect]
     Active Substance: BOSUTINIB MONOHYDRATE
     Dosage: 300 MG, DAILY (MUST ADMINISTER WITH A MEAL/FOOD)
     Route: 048
     Dates: start: 20241107

REACTIONS (11)
  - Pancreatitis [Unknown]
  - Abdominal pain [Recovered/Resolved]
  - Nausea [Recovered/Resolved]
  - Reflux gastritis [Unknown]
  - Fatigue [Unknown]
  - Decreased appetite [Unknown]
  - Weight decreased [Unknown]
  - Vomiting [Unknown]
  - Diarrhoea [Unknown]
  - Liver function test abnormal [Unknown]
  - Rash [Unknown]

NARRATIVE: CASE EVENT DATE: 20240226
